FAERS Safety Report 8586807-8 (Version None)
Quarter: 2012Q3

REPORT INFORMATION
  Report Type: 
  Country: None (occurrence: None)
  Receive Date: 20120810
  Receipt Date: 20120731
  Transmission Date: 20120928
  Serious: Yes (Hospitalization)
  Sender: FDA-Public Use
  Company Number: FR-ABBOTT-10P-056-0656062-01

PATIENT
  Age: 28 Year
  Sex: Female
  Weight: 60 kg

DRUGS (3)
  1. PREDNISONE TAB [Concomitant]
     Indication: CROHN'S DISEASE
  2. AZATHIOPRINE [Concomitant]
     Indication: CROHN'S DISEASE
     Dates: start: 20100301
  3. HUMIRA [Suspect]
     Indication: CROHN'S DISEASE
     Dosage: INDUCTION REGIMEN: 80 MG (BASELINE)/40 MG (WEEK 2)
     Route: 058
     Dates: start: 20090514, end: 20100308

REACTIONS (2)
  - ECZEMA [None]
  - PSORIASIS [None]
